FAERS Safety Report 13864057 (Version 7)
Quarter: 2018Q2

REPORT INFORMATION
  Report Type: Report from Study
  Country: CA (occurrence: CA)
  Receive Date: 20170814
  Receipt Date: 20180613
  Transmission Date: 20180711
  Serious: Yes (Other)
  Sender: FDA-Public Use
  Company Number: CA-JNJFOC-20170414236

PATIENT
  Age: 60 Year
  Sex: Female
  Weight: 63.2 kg

DRUGS (6)
  1. REMICADE [Suspect]
     Active Substance: INFLIXIMAB
     Indication: CROHN^S DISEASE
     Route: 042
     Dates: start: 20170412
  2. REMICADE [Suspect]
     Active Substance: INFLIXIMAB
     Indication: CROHN^S DISEASE
     Route: 042
     Dates: start: 201402
  3. REMICADE [Suspect]
     Active Substance: INFLIXIMAB
     Indication: CROHN^S DISEASE
     Route: 042
     Dates: start: 201604
  4. REMICADE [Suspect]
     Active Substance: INFLIXIMAB
     Indication: CROHN^S DISEASE
     Route: 042
     Dates: start: 20160425
  5. REMICADE [Suspect]
     Active Substance: INFLIXIMAB
     Indication: CROHN^S DISEASE
     Route: 042
     Dates: start: 20170608, end: 201805
  6. METHOTREXATE. [Concomitant]
     Active Substance: METHOTREXATE
     Route: 048

REACTIONS (10)
  - Basal cell carcinoma [Unknown]
  - Anxiety [Unknown]
  - General physical health deterioration [Not Recovered/Not Resolved]
  - Frustration tolerance decreased [Unknown]
  - Dermatitis [Unknown]
  - Crohn^s disease [Unknown]
  - Gastrointestinal disorder [Not Recovered/Not Resolved]
  - Vulval abscess [Not Recovered/Not Resolved]
  - Herpes zoster [Not Recovered/Not Resolved]
  - Vulvitis [Not Recovered/Not Resolved]

NARRATIVE: CASE EVENT DATE: 2017
